FAERS Safety Report 8389748-4 (Version None)
Quarter: 2012Q2

REPORT INFORMATION
  Report Type: 
  Country: None (occurrence: None)
  Receive Date: 20120524
  Receipt Date: 20120524
  Transmission Date: 20120825
  Serious: No
  Sender: FDA-Public Use
  Company Number: None

PATIENT
  Age: 56 Year
  Sex: Male

DRUGS (1)
  1. LUPRON [Suspect]
     Dosage: LUPRON 22.5MG EVERY 3 MONT IM
     Route: 030
     Dates: start: 20110503

REACTIONS (1)
  - HYPOAESTHESIA [None]
